FAERS Safety Report 15896114 (Version 4)
Quarter: 2022Q3

REPORT INFORMATION
  Report Type: Report from Study
  Country: US (occurrence: US)
  Receive Date: 20190131
  Receipt Date: 20220714
  Transmission Date: 20221027
  Serious: No
  Sender: FDA-Public Use
  Company Number: US-SA-2019SA023986

PATIENT
  Age: 70 Year
  Sex: Male

DRUGS (13)
  1. DUPILUMAB [Suspect]
     Active Substance: DUPILUMAB
     Indication: Dermatitis atopic
     Dosage: 600 MG, 1X
     Route: 058
  2. DUPILUMAB [Suspect]
     Active Substance: DUPILUMAB
     Indication: Eczema
     Dosage: 300 MG, QOW
     Route: 058
     Dates: end: 2015
  3. DUPILUMAB [Suspect]
     Active Substance: DUPILUMAB
     Indication: Skin disorder
     Dosage: 600 MG, 1X
     Dates: start: 201901, end: 201901
  4. DUPILUMAB [Suspect]
     Active Substance: DUPILUMAB
     Indication: Pruritus
     Dosage: 300 MG, QOW
     Route: 058
     Dates: start: 20201014
  5. DUPILUMAB [Suspect]
     Active Substance: DUPILUMAB
     Indication: Discomfort
     Dosage: 600 MG
     Route: 058
     Dates: start: 20201020, end: 20201020
  6. DUPILUMAB [Suspect]
     Active Substance: DUPILUMAB
     Dosage: 300 MG, QOW
     Route: 058
  7. DUPILUMAB [Suspect]
     Active Substance: DUPILUMAB
     Indication: Dermatitis atopic
     Dosage: 2 DF
  8. PREDNISONE [Concomitant]
     Active Substance: PREDNISONE
     Indication: Pruritus
     Dosage: 3 DF, QD
     Dates: start: 201812
  9. PREDNISONE [Concomitant]
     Active Substance: PREDNISONE
     Indication: Inflammation
     Dosage: 2 DF, QD
  10. PREDNISONE [Concomitant]
     Active Substance: PREDNISONE
     Indication: Eczema
     Dosage: UNK, QOD
     Dates: end: 201901
  11. LIPITOR [Concomitant]
     Active Substance: ATORVASTATIN CALCIUM
     Dosage: UNK
  12. ASPIRIN [Concomitant]
     Active Substance: ASPIRIN
     Dosage: UNK
  13. VITAMINS NOS [Concomitant]
     Active Substance: VITAMINS
     Dosage: UNK

REACTIONS (3)
  - Injection site pain [Unknown]
  - Oedema peripheral [Not Recovered/Not Resolved]
  - Pain of skin [Not Recovered/Not Resolved]

NARRATIVE: CASE EVENT DATE: 20190101
